FAERS Safety Report 8614596-7 (Version None)
Quarter: 2012Q3

REPORT INFORMATION
  Report Type: 
  Country: None (occurrence: None)
  Receive Date: 20120823
  Receipt Date: 20120821
  Transmission Date: 20120928
  Serious: Yes (Other)
  Sender: FDA-Public Use
  Company Number: PHHY2012JP067249

PATIENT
  Age: 30 Year
  Sex: Female
  Weight: 58 kg

DRUGS (4)
  1. DIPYRIDAMOLE [Concomitant]
     Dosage: 50 MG, PER DAY
  2. ISOSORBIDE DINITRATE [Concomitant]
     Dosage: 40 MG, PER DAY
  3. LOPRESSOR [Suspect]
     Dosage: 40 MG, PER DAY
  4. NIFEDIPINE [Concomitant]

REACTIONS (4)
  - MATERNAL EXPOSURE DURING PREGNANCY [None]
  - DRUG INTOLERANCE [None]
  - BREECH PRESENTATION [None]
  - UTERINE HYPOTONUS [None]
